FAERS Safety Report 6300929-3 (Version None)
Quarter: 2009Q3

REPORT INFORMATION
  Report Type: 
  Country: None (occurrence: None)
  Receive Date: 20090807
  Receipt Date: 20071116
  Transmission Date: 20100115
  Serious: Yes (Other)
  Sender: FDA-Public Use
  Company Number: US-ASTRAZENECA-2006UW25648

PATIENT
  Age: 21871 Day
  Sex: Female
  Weight: 99.8 kg

DRUGS (8)
  1. SEROQUEL [Suspect]
     Dosage: 50MG-125MG DAILY
     Route: 048
     Dates: start: 19991129
  2. UNKNOWN PSYCHIATRIC MEDICATION [Concomitant]
  3. XANAX [Concomitant]
     Indication: MENTAL DISORDER
     Dosage: 1.5 MG-25 MG
     Dates: start: 19990217
  4. ZONEGRAN [Concomitant]
     Indication: PAIN MANAGEMENT
     Route: 048
     Dates: start: 20040920
  5. BYETTA [Concomitant]
     Dates: start: 20060524
  6. LOTENSIN [Concomitant]
     Dates: start: 20040304
  7. NEXIUM [Concomitant]
     Dates: start: 20040304
  8. EFFEXOR XR [Concomitant]
     Dates: start: 20040920

REACTIONS (5)
  - DIABETES MELLITUS [None]
  - DIABETIC AUTONOMIC NEUROPATHY [None]
  - DIABETIC NEUROPATHY [None]
  - TYPE 1 DIABETES MELLITUS [None]
  - TYPE 2 DIABETES MELLITUS [None]
